FAERS Safety Report 7503912-5 (Version None)
Quarter: 2011Q2

REPORT INFORMATION
  Report Type: 
  Country: None (occurrence: None)
  Receive Date: 20110525
  Receipt Date: 20110518
  Transmission Date: 20111010
  Serious: Yes (Hospitalization)
  Sender: FDA-Public Use
  Company Number: US-US-EMD SERONO, INC.-7056232

PATIENT
  Sex: Female

DRUGS (9)
  1. REBIF [Suspect]
     Indication: MULTIPLE SCLEROSIS
     Route: 058
     Dates: start: 20110111
  2. REBIF [Suspect]
  3. MOTRIN [Concomitant]
     Indication: HEADACHE
  4. ACETAMINOPHEN [Concomitant]
     Indication: PAIN
  5. CYCLOBENZAPRINE [Concomitant]
     Indication: MULTIPLE SCLEROSIS
  6. ACETAMINOPHEN [Concomitant]
     Indication: PYREXIA
  7. UNSPECIFIED BLOOD PRESSURE MEDICATION [Concomitant]
     Indication: BLOOD PRESSURE
  8. MOTRIN [Concomitant]
     Indication: PAIN
  9. ACETAMINOPHEN [Concomitant]
     Indication: HEADACHE

REACTIONS (2)
  - VISUAL IMPAIRMENT [None]
  - ASTHENIA [None]
